FAERS Safety Report 4561643-8 (Version None)
Quarter: 2005Q1

REPORT INFORMATION
  Report Type: 
  Country: None (occurrence: None)
  Receive Date: 20050126
  Receipt Date: 20050118
  Transmission Date: 20050727
  Serious: Yes (Other)
  Sender: FDA-Public Use
  Company Number: SE-GLAXOSMITHKLINE-B0365434A

PATIENT
  Age: 45 Year
  Sex: Female

DRUGS (5)
  1. ZYBAN [Suspect]
     Dosage: 150MG PER DAY
     Route: 048
     Dates: start: 20041101, end: 20041101
  2. ALBYL MINOR [Concomitant]
  3. METOPROLOL SUCCINATE [Concomitant]
  4. NOBLIGAN RETARD [Concomitant]
     Dosage: 100MG PER DAY
  5. CELEBRA [Concomitant]
     Dosage: 100MG PER DAY

REACTIONS (4)
  - DYSARTHRIA [None]
  - HYPOAESTHESIA ORAL [None]
  - PARAESTHESIA [None]
  - TONGUE PARALYSIS [None]
